FAERS Safety Report 9842659 (Version 1)
Quarter: 2014Q1

REPORT INFORMATION
  Report Type: Spontaneous
  Country: GB (occurrence: GB)
  Receive Date: 20140124
  Receipt Date: 20140124
  Transmission Date: 20141002
  Serious: Yes (Other)
  Sender: FDA-Public Use
  Company Number: GB-WATSON-2014-00564

PATIENT
  Age: 10 Year
  Sex: Male
  Weight: 40 kg

DRUGS (1)
  1. TOPIRAMATE (UNKNOWN) [Suspect]
     Indication: HEADACHE
     Dosage: 25 MG, UNK
     Route: 048
     Dates: start: 20131101, end: 20131130

REACTIONS (3)
  - Dizziness [Recovered/Resolved]
  - Social avoidant behaviour [Recovered/Resolved]
  - Drug ineffective [Unknown]
